FAERS Safety Report 7475882-X (Version None)
Quarter: 2011Q2

REPORT INFORMATION
  Report Type: 
  Country: None (occurrence: None)
  Receive Date: 20110512
  Receipt Date: 20110427
  Transmission Date: 20111010
  Serious: Yes (Hospitalization)
  Sender: FDA-Public Use
  Company Number: JP-JNJFOC-20110404068

PATIENT
  Age: 45 Year
  Sex: Male
  Weight: 62 kg

DRUGS (11)
  1. RISPERIDONE [Suspect]
     Indication: SCHIZOPHRENIA
     Route: 048
  2. HALOPERIDOL [Suspect]
     Indication: SCHIZOPHRENIA
     Route: 030
  3. FLUNITRAZEPAM [Concomitant]
     Indication: SCHIZOPHRENIA
     Route: 048
  4. TASMOLIN [Concomitant]
     Indication: SCHIZOPHRENIA
     Route: 030
  5. INVEGA [Suspect]
     Indication: SCHIZOPHRENIA
     Route: 048
  6. RISPERIDONE [Suspect]
     Route: 048
  7. WYPAX [Concomitant]
     Route: 048
  8. RISPERIDONE [Suspect]
     Route: 048
  9. RISPERIDONE [Suspect]
     Route: 048
  10. INVEGA [Suspect]
     Route: 048
  11. WYPAX [Concomitant]
     Indication: SCHIZOPHRENIA
     Route: 048

REACTIONS (1)
  - NEUROLEPTIC MALIGNANT SYNDROME [None]
